FAERS Safety Report 12278283 (Version 1)
Quarter: 2016Q2

REPORT INFORMATION
  Report Type: Spontaneous
  Country: GB (occurrence: GB)
  Receive Date: 20160418
  Receipt Date: 20160418
  Transmission Date: 20160815
  Serious: Yes (Life-Threatening, Hospitalization)
  Sender: FDA-Public Use
  Company Number: GB-B. BRAUN MEDICAL INC.-1050686

PATIENT
  Age: 91 Year
  Sex: Female

DRUGS (10)
  1. METRONIDAZOLE. [Suspect]
     Active Substance: METRONIDAZOLE
     Indication: CHOLANGITIS
     Route: 042
     Dates: start: 20160309, end: 20160314
  2. CIPROFLOXACIN. [Suspect]
     Active Substance: CIPROFLOXACIN
     Route: 042
     Dates: start: 20160308, end: 20160314
  3. ONDANSETRON [Concomitant]
     Active Substance: ONDANSETRON
  4. OXYCODONE [Concomitant]
     Active Substance: OXYCODONE
  5. ATENOLOL. [Concomitant]
     Active Substance: ATENOLOL
  6. LACTULOSE. [Concomitant]
     Active Substance: LACTULOSE
  7. CYCLIZINE [Concomitant]
     Active Substance: CYCLIZINE
  8. METANIUM ( SALICYLIC ACID,TITANIUM DIOXIDE, TITANIUM PEROXIDE,..) [Concomitant]
  9. ADCAL-D3 (CALCIUM CARBONATE,COLECALCIFEROL) [Concomitant]
  10. FOLIC ACID. [Concomitant]
     Active Substance: FOLIC ACID

REACTIONS (1)
  - Pancytopenia [None]
